FAERS Safety Report 6493415-1 (Version None)
Quarter: 2009Q4

REPORT INFORMATION
  Report Type: 
  Country: None (occurrence: None)
  Receive Date: 20091209
  Receipt Date: 20091124
  Transmission Date: 20100525
  Serious: Yes (Hospitalization)
  Sender: FDA-Public Use
  Company Number: 233529J09USA

PATIENT
  Age: 42 Year
  Sex: Male
  Weight: 82 kg

DRUGS (12)
  1. REBIF [Suspect]
     Indication: MULTIPLE SCLEROSIS
     Dosage: 44 MCG, 3 IN 1 WEEKS, SUBCUTANEOUS
     Route: 058
     Dates: start: 20071022
  2. HUMALOG INSULIN (INSULIN LISPRO) [Concomitant]
  3. PROVIGIL [Concomitant]
  4. AMANTADINE HCL [Concomitant]
  5. LYRICA [Concomitant]
  6. ATENOLOL [Concomitant]
  7. SIMVASTATIN [Concomitant]
  8. FLOMAX (MORNIFLUMATE) [Concomitant]
  9. CYMBALTA [Concomitant]
  10. STEROIDS (CORTICOSTEROIDS) [Concomitant]
  11. RELPAX [Concomitant]
  12. DIAZEPAM [Concomitant]

REACTIONS (6)
  - BIPOLAR I DISORDER [None]
  - CHEST PAIN [None]
  - CONDITION AGGRAVATED [None]
  - DEHYDRATION [None]
  - GASTROENTERITIS VIRAL [None]
  - MULTIPLE SCLEROSIS [None]
